FAERS Safety Report 25389151 (Version 1)
Quarter: 2025Q2

REPORT INFORMATION
  Report Type: Spontaneous
  Country: NL (occurrence: NL)
  Receive Date: 20250603
  Receipt Date: 20250603
  Transmission Date: 20250717
  Serious: Yes (Hospitalization)
  Sender: TERSERA THERAPEUTICS
  Company Number: NL-AstraZeneca-CH-00874671A

PATIENT

DRUGS (2)
  1. GOSERELIN [Suspect]
     Active Substance: GOSERELIN
     Indication: Prostatomegaly
     Route: 058
     Dates: start: 20220228
  2. ZOLADEX [Suspect]
     Active Substance: GOSERELIN ACETATE
     Indication: Prostatomegaly
     Route: 065

REACTIONS (3)
  - Wound [Recovering/Resolving]
  - Renal disorder [Recovering/Resolving]
  - Pleural effusion [Recovering/Resolving]

NARRATIVE: CASE EVENT DATE: 20250521
